FAERS Safety Report 8059338-1 (Version None)
Quarter: 2012Q1

REPORT INFORMATION
  Report Type: 
  Country: None (occurrence: None)
  Receive Date: 20120120
  Receipt Date: 20120120
  Transmission Date: 20120608
  Serious: Yes (Hospitalization)
  Sender: FDA-Public Use
  Company Number: None

PATIENT
  Age: 50 Year
  Sex: Male
  Weight: 81.646 kg

DRUGS (1)
  1. LOSARTAN POTASSIUM [Suspect]
     Indication: HYPERTENSION
     Dosage: 25MG
     Route: 048
     Dates: start: 20111215, end: 20120126

REACTIONS (5)
  - MUSCULOSKELETAL PAIN [None]
  - CHEST PAIN [None]
  - DECREASED APPETITE [None]
  - OROPHARYNGEAL PAIN [None]
  - FLATULENCE [None]
